FAERS Safety Report 5818309-3 (Version None)
Quarter: 2008Q3

REPORT INFORMATION
  Report Type: 
  Country: None (occurrence: None)
  Receive Date: 20080722
  Receipt Date: 20080710
  Transmission Date: 20090109
  Serious: Yes (Hospitalization, Other)
  Sender: FDA-Public Use
  Company Number: US-PFIZER INC-2008049530

PATIENT
  Age: 48 Year
  Sex: Female
  Weight: 89.4 kg

DRUGS (3)
  1. GEODON [Suspect]
     Indication: BIPOLAR DISORDER
     Route: 048
  2. NAVANE [Suspect]
  3. KLONOPIN [Suspect]

REACTIONS (5)
  - DROOLING [None]
  - DYSKINESIA [None]
  - DYSPNOEA [None]
  - LIVER DISORDER [None]
  - SWOLLEN TONGUE [None]
